FAERS Safety Report 22036205 (Version 1)
Quarter: 2023Q1

REPORT INFORMATION
  Report Type: Spontaneous
  Country: GB (occurrence: GB)
  Receive Date: 20230225
  Receipt Date: 20230225
  Transmission Date: 20230418
  Serious: Yes (Disabling, Other)
  Sender: FDA-Public Use
  Company Number: GB-MHRA-ADR 27680667

PATIENT
  Sex: Female

DRUGS (1)
  1. CIPROFLOXACIN [Suspect]
     Active Substance: CIPROFLOXACIN
     Indication: Product used for unknown indication
     Dosage: UNK
     Route: 065
     Dates: start: 2014

REACTIONS (21)
  - Balance disorder [Unknown]
  - Bradycardia [Unknown]
  - Cataract [Unknown]
  - Constipation [Unknown]
  - Crying [Unknown]
  - Deafness unilateral [Unknown]
  - Dizziness [Unknown]
  - Dupuytren^s contracture [Unknown]
  - Extrasystoles [Unknown]
  - Eye movement disorder [Unknown]
  - Fine motor skill dysfunction [Unknown]
  - Gastrointestinal bacterial overgrowth [Unknown]
  - Hypotension [Not Recovered/Not Resolved]
  - Mobility decreased [Unknown]
  - Muscle atrophy [Unknown]
  - Muscular weakness [Unknown]
  - Myopathy [Unknown]
  - Osteoporosis [Unknown]
  - Reflux gastritis [Unknown]
  - Tinnitus [Unknown]
  - Vitreous floaters [Unknown]
